FAERS Safety Report 21724216 (Version 5)
Quarter: 2023Q1

REPORT INFORMATION
  Report Type: Spontaneous
  Country: CA (occurrence: CA)
  Receive Date: 20221213
  Receipt Date: 20230309
  Transmission Date: 20230418
  Serious: Yes (Death, Hospitalization)
  Sender: FDA-Public Use
  Company Number: CA-KARYOPHARM THERAPEUTICS, INC.-2022KPT001373

PATIENT

DRUGS (4)
  1. XPOVIO [Suspect]
     Active Substance: SELINEXOR
     Indication: Plasma cell myeloma
     Dosage: 100 MG, WEEKLY FOR 5 WEEKS (1 CYCLE)
     Route: 048
     Dates: start: 20221014, end: 20221107
  2. ONDANSETRON [Concomitant]
     Active Substance: ONDANSETRON
     Dosage: UNK
  3. DEXAMETHASONE [Concomitant]
     Active Substance: DEXAMETHASONE
     Dosage: UNK
     Dates: start: 20221014
  4. BORTEZOMIB [Concomitant]
     Active Substance: BORTEZOMIB
     Dosage: UNK
     Dates: start: 20221014

REACTIONS (9)
  - Death [Fatal]
  - Influenza [Recovered/Resolved]
  - Pulmonary embolism [Unknown]
  - Pneumonia [Unknown]
  - Clostridium difficile infection [Recovered/Resolved]
  - Plasma cell myeloma [Unknown]
  - Platelet count decreased [Unknown]
  - Diarrhoea [Unknown]
  - Decreased appetite [Unknown]

NARRATIVE: CASE EVENT DATE: 20220101
